FAERS Safety Report 6050712-1 (Version None)
Quarter: 2009Q1

REPORT INFORMATION
  Report Type: 
  Country: None (occurrence: None)
  Receive Date: 20090126
  Receipt Date: 20090126
  Transmission Date: 20090719
  Serious: Yes (Disabling, Other)
  Sender: FDA-Public Use
  Company Number: US-PFIZER INC-2008087711

PATIENT
  Sex: Male
  Weight: 142.86 kg

DRUGS (11)
  1. LYRICA [Suspect]
     Indication: DIABETIC NEUROPATHY
     Dosage: 25 MG, 3X/DAY
     Route: 048
     Dates: start: 20080918, end: 20080101
  2. ANTIHYPERTENSIVES [Concomitant]
     Indication: HYPERTENSION
  3. DRUG USED IN DIABETES [Concomitant]
     Indication: DIABETES MELLITUS
  4. NORCO [Concomitant]
     Dosage: 10/ 325
  5. CARDURA [Concomitant]
     Dosage: 8 MG, UNK
  6. SINGULAIR [Concomitant]
     Dosage: 10 MG, UNK
  7. CLONIDINE [Concomitant]
     Dosage: 0.3 MG, 2X/DAY
  8. METFORMIN HYDROCHLORIDE/SITAGLIPTIN [Concomitant]
     Dosage: 500/1000
  9. AMLODIPINE BESYLATE/VALSARTAN [Concomitant]
     Dosage: 10/ 320
  10. TRICOR [Concomitant]
     Dosage: 145 MG, UNK
  11. FLOVENT [Concomitant]
     Dosage: 44 UG, UNK

REACTIONS (6)
  - EYE HAEMORRHAGE [None]
  - EYE INJURY [None]
  - MYODESOPSIA [None]
  - RETINAL DETACHMENT [None]
  - VISUAL ACUITY REDUCED [None]
  - VITREOUS DETACHMENT [None]
